FAERS Safety Report 7407258-5 (Version None)
Quarter: 2011Q2

REPORT INFORMATION
  Report Type: 
  Country: None (occurrence: None)
  Receive Date: 20110411
  Receipt Date: 20110329
  Transmission Date: 20111010
  Serious: Yes (Other)
  Sender: FDA-Public Use
  Company Number: PHHY2011US25538

PATIENT
  Sex: Male

DRUGS (2)
  1. GLEEVEC [Suspect]
     Dosage: UNK
  2. GLEEVEC [Suspect]
     Indication: CHRONIC MYELOID LEUKAEMIA
     Dosage: 400 MG, QD
     Dates: start: 20080626

REACTIONS (25)
  - LOSS OF CONSCIOUSNESS [None]
  - ACUTE SINUSITIS [None]
  - WHEEZING [None]
  - RESPIRATORY FAILURE [None]
  - NAUSEA [None]
  - CEREBRAL ATROPHY [None]
  - HYPERLIPIDAEMIA [None]
  - ELECTROCARDIOGRAM ST SEGMENT DEPRESSION [None]
  - ANAEMIA [None]
  - PYREXIA [None]
  - SYNCOPE [None]
  - FLUID OVERLOAD [None]
  - HYPOKALAEMIA [None]
  - DEHYDRATION [None]
  - ASTHENIA [None]
  - INFLUENZA [None]
  - BLOOD CREATININE INCREASED [None]
  - DIABETES MELLITUS [None]
  - DIZZINESS [None]
  - VENTRICULAR EXTRASYSTOLES [None]
  - CARDIAC FAILURE CONGESTIVE [None]
  - COUGH [None]
  - DYSPNOEA [None]
  - BRONCHOSPASM [None]
  - PANCYTOPENIA [None]
